FAERS Safety Report 9029010 (Version 1)
Quarter: 2013Q1

REPORT INFORMATION
  Report Type: Report from Study
  Country: US (occurrence: US)
  Receive Date: 20130122
  Receipt Date: 20130122
  Transmission Date: 20140127
  Serious: Yes (Other)
  Sender: FDA-Public Use
  Company Number: US-ROCHE-1180591

PATIENT
  Age: 50 Year
  Sex: Female

DRUGS (3)
  1. XELODA [Suspect]
     Indication: BREAST CANCER METASTATIC
     Dosage: 1500 MG IN THE MORNING
     Route: 048
     Dates: start: 20120601
  2. XELODA [Suspect]
     Dosage: 1000 MG AT NIGHT
     Route: 048
     Dates: start: 20120601
  3. TYKERB [Concomitant]
     Indication: BREAST CANCER METASTATIC
     Route: 048
     Dates: start: 20120301

REACTIONS (1)
  - Neoplasm [Not Recovered/Not Resolved]
